FAERS Safety Report 9685696 (Version 1)
Quarter: 2013Q4

REPORT INFORMATION
  Report Type: Spontaneous
  Country: US (occurrence: US)
  Receive Date: 20131113
  Receipt Date: 20131113
  Transmission Date: 20140711
  Serious: No
  Sender: FDA-Public Use
  Company Number: US-PFIZER INC-2013320783

PATIENT
  Age: 49 Year
  Sex: Female
  Weight: 63.49 kg

DRUGS (4)
  1. LYRICA [Suspect]
     Indication: FIBROMYALGIA
     Dosage: 75 MG, 2X/DAY
     Route: 048
     Dates: end: 2011
  2. LYRICA [Suspect]
     Indication: NEURALGIA
  3. SOMA [Concomitant]
     Indication: MUSCLE RELAXANT THERAPY
     Dosage: UNK
  4. XANAX [Concomitant]
     Dosage: UNK, AS NEEDED

REACTIONS (1)
  - Neuralgia [Unknown]
